FAERS Safety Report 7354320-1 (Version None)
Quarter: 2011Q1

REPORT INFORMATION
  Report Type: 
  Country: None (occurrence: None)
  Receive Date: 20110316
  Receipt Date: 20110311
  Transmission Date: 20110831
  Serious: No
  Sender: FDA-Public Use
  Company Number: US-TEVA-271114USA

PATIENT
  Sex: Female
  Weight: 113.5 kg

DRUGS (3)
  1. PROZAC [Concomitant]
     Indication: DEPRESSION
     Route: 048
  2. MOTRIN [Concomitant]
     Indication: PRODUCT USED FOR UNKNOWN INDICATION
     Route: 048
  3. PLAN B ONE-STEP [Suspect]
     Indication: POST COITAL CONTRACEPTION
     Route: 048
     Dates: start: 20110221, end: 20110221

REACTIONS (3)
  - DIARRHOEA [None]
  - MENSTRUATION IRREGULAR [None]
  - ANAL HAEMORRHAGE [None]
